FAERS Safety Report 7403467-X (Version None)
Quarter: 2011Q2

REPORT INFORMATION
  Report Type: 
  Country: None (occurrence: None)
  Receive Date: 20110408
  Receipt Date: 20110401
  Transmission Date: 20111010
  Serious: Yes (Other)
  Sender: FDA-Public Use
  Company Number: B0710289A

PATIENT
  Age: 69 Year
  Sex: Female

DRUGS (4)
  1. MODOPAR [Suspect]
     Indication: PARKINSON'S DISEASE
     Route: 065
  2. REQUIP [Suspect]
     Indication: PARKINSON'S DISEASE
     Dosage: 16MG PER DAY
     Route: 048
  3. REQUIP [Suspect]
     Indication: PARKINSON'S DISEASE
     Route: 065
     Dates: start: 20001201
  4. SINEMET [Suspect]
     Route: 065

REACTIONS (2)
  - HYPERSEXUALITY [None]
  - BREAST CANCER [None]
